FAERS Safety Report 13296579 (Version 1)
Quarter: 2017Q1

REPORT INFORMATION
  Report Type: Spontaneous
  Country: GB (occurrence: GB)
  Receive Date: 20170306
  Receipt Date: 20170306
  Transmission Date: 20170428
  Serious: Yes (Hospitalization)
  Sender: FDA-Public Use
  Company Number: GB-SCIEGEN PHARMACEUTICALS INC-2017SCILIT00169

PATIENT
  Age: 69 Year
  Sex: Male

DRUGS (1)
  1. CLOPIDOGREL [Suspect]
     Active Substance: CLOPIDOGREL BISULFATE
     Indication: PRODUCT USED FOR UNKNOWN INDICATION
     Dosage: UNK
     Route: 065

REACTIONS (7)
  - Gastrointestinal necrosis [Unknown]
  - Ischaemia [Unknown]
  - Rectal perforation [Unknown]
  - Hypotension [Unknown]
  - Peritonitis [Unknown]
  - Retroperitoneal haematoma [Recovered/Resolved]
  - Tachycardia [Unknown]
